FAERS Safety Report 6065657-0 (Version None)
Quarter: 2009Q1

REPORT INFORMATION
  Report Type: 
  Country: None (occurrence: None)
  Receive Date: 20090130
  Receipt Date: 20090127
  Transmission Date: 20090719
  Serious: Yes (Hospitalization)
  Sender: FDA-Public Use
  Company Number: 2009S1001595

PATIENT
  Age: 50 Year
  Sex: Female

DRUGS (6)
  1. ALLOPURINOL [Suspect]
     Indication: RENAL FAILURE CHRONIC
     Dosage: 300 MG; DAILY; ORAL
     Route: 048
     Dates: start: 20081129, end: 20081229
  2. ARANESP [Suspect]
     Indication: NEPHROGENIC ANAEMIA
     Dosage: 60 UG; WEEKLY; SUBCUTANEOUS
     Route: 058
     Dates: start: 20081129, end: 20081229
  3. NEBIVOLOL HCL [Suspect]
     Indication: HYPERTENSION
     Dosage: 5 MG; DAILY; ORAL
     Route: 048
     Dates: start: 20081129, end: 20081229
  4. CARDURA [Suspect]
     Indication: HYPERTENSION
     Dosage: 4 MG; DAILY; ORAL
     Route: 048
     Dates: start: 20081129, end: 20081229
  5. LASIX [Suspect]
     Indication: HYPERTENSION
     Dosage: 25 MG; DAILY; ORAL
     Route: 048
     Dates: start: 20081129, end: 20081229
  6. VALSARTAN [Suspect]
     Indication: HYPERTENSION
     Dosage: 160 MG; DAILY; ORAL
     Route: 048
     Dates: start: 20081129, end: 20081229

REACTIONS (1)
  - DRUG ERUPTION [None]
